FAERS Safety Report 12787460 (Version 1)
Quarter: 2016Q3

REPORT INFORMATION
  Report Type: Spontaneous
  Country: US (occurrence: US)
  Receive Date: 20160928
  Receipt Date: 20160928
  Transmission Date: 20161109
  Serious: Yes (Other)
  Sender: FDA-Public Use
  Company Number: US-SUN PHARMACEUTICAL INDUSTRIES LTD-2016US-124359

PATIENT
  Age: 80 Year
  Sex: Male

DRUGS (1)
  1. MINOCYCLINE [Suspect]
     Active Substance: MINOCYCLINE\MINOCYCLINE HYDROCHLORIDE
     Indication: RHINOPHYMA
     Dosage: UNK
     Route: 048

REACTIONS (3)
  - Detachment of retinal pigment epithelium [Unknown]
  - Retinal pigmentation [Unknown]
  - Skin hyperpigmentation [Unknown]
